FAERS Safety Report 6027670-9 (Version None)
Quarter: 2009Q1

REPORT INFORMATION
  Report Type: 
  Country: None (occurrence: None)
  Receive Date: 20090105
  Receipt Date: 20090102
  Transmission Date: 20090719
  Serious: Yes (Death)
  Sender: FDA-Public Use
  Company Number: MX-TEVA-183262ISR

PATIENT
  Sex: Male
  Weight: 39 kg

DRUGS (14)
  1. PACLITAXEL [Suspect]
     Indication: NON-SMALL CELL LUNG CANCER
     Dosage: ON DAY 1 OF 21-DAY CYCLE
     Route: 042
     Dates: start: 20061222, end: 20061222
  2. PACLITAXEL [Suspect]
     Dosage: ON DAY 1 OF 21-DAY CYCLE
     Route: 042
     Dates: start: 20070111, end: 20070111
  3. PACLITAXEL [Suspect]
     Dosage: ON DAY 1 OF 21-DAY CYCLE
     Route: 042
     Dates: start: 20070202, end: 20070202
  4. CARBOPLATIN [Suspect]
     Indication: NON-SMALL CELL LUNG CANCER
     Dosage: ON DAY 1 OF 21-DAY CYCLE
     Route: 042
     Dates: start: 20061222, end: 20061222
  5. CARBOPLATIN [Suspect]
     Dosage: ON DAY 1 OF 21-DAY CYCLE
     Route: 042
     Dates: start: 20070111, end: 20070111
  6. CARBOPLATIN [Suspect]
     Dosage: ON DAY 1 OF 21-DAY CYCLE
     Route: 042
     Dates: start: 20070202, end: 20070202
  7. GABAPENTIN [Concomitant]
     Dates: start: 20070111
  8. CLONAZEPAM [Concomitant]
     Dates: start: 20070111
  9. PARACETAMOL [Concomitant]
     Dates: start: 20070122, end: 20070208
  10. CELECOXIB [Concomitant]
     Dates: start: 20061229, end: 20070208
  11. DEXTROMETHORPHAN HYDROBROMIDE [Concomitant]
     Dates: start: 20070111, end: 20070208
  12. HALOPERIDOL [Concomitant]
     Dates: start: 20070126, end: 20070208
  13. OMEPRAZOLE [Concomitant]
     Dates: start: 20070126, end: 20070208
  14. SODIUM PICOSULFATE [Concomitant]
     Dates: start: 20070111, end: 20070208

REACTIONS (6)
  - ARRHYTHMIA [None]
  - CARDIAC ARREST [None]
  - DEHYDRATION [None]
  - DIARRHOEA [None]
  - HYPERKALAEMIA [None]
  - RENAL FAILURE ACUTE [None]
